FAERS Safety Report 4863356-1 (Version None)
Quarter: 2005Q4

REPORT INFORMATION
  Report Type: 
  Country: None (occurrence: None)
  Receive Date: 20051222
  Receipt Date: 20051212
  Transmission Date: 20060501
  Serious: Yes (Other)
  Sender: FDA-Public Use
  Company Number: US-NOVOPROD-249301

PATIENT
  Age: 11 Year
  Sex: Female
  Weight: 41 kg

DRUGS (2)
  1. NORDITROPIN CARTRIDGES [Suspect]
     Indication: TURNER'S SYNDROME
     Dosage: UNKNOWN
     Route: 058
     Dates: start: 20041201
  2. ANTIBIOTICS [Concomitant]
     Indication: CARDIAC MURMUR
     Route: 048

REACTIONS (3)
  - AORTIC DILATATION [None]
  - EPISTAXIS [None]
  - TOE DEFORMITY [None]
